FAERS Safety Report 6855531-1 (Version None)
Quarter: 2010Q3

REPORT INFORMATION
  Report Type: 
  Country: None (occurrence: None)
  Receive Date: 20100719
  Receipt Date: 20100709
  Transmission Date: 20110219
  Serious: Yes (Hospitalization)
  Sender: FDA-Public Use
  Company Number: US-SP-2010-03833

PATIENT
  Age: 29 Year
  Sex: Female

DRUGS (2)
  1. IMOGAM RABIES-HT [Suspect]
     Indication: IMMUNISATION
     Route: 065
  2. IMOVAX RABIES I.D. [Suspect]
     Indication: IMMUNISATION
     Route: 065

REACTIONS (9)
  - ABDOMINAL PAIN [None]
  - ASTHENIA [None]
  - CHILLS [None]
  - GAIT DISTURBANCE [None]
  - HEADACHE [None]
  - HEMIPARESIS [None]
  - NAUSEA [None]
  - PAIN [None]
  - TREMOR [None]
